FAERS Safety Report 5023954-1 (Version None)
Quarter: 2006Q2

REPORT INFORMATION
  Report Type: 
  Country: None (occurrence: None)
  Receive Date: 20060607
  Receipt Date: 20060525
  Transmission Date: 20061013
  Serious: Yes (Hospitalization)
  Sender: FDA-Public Use
  Company Number: US017654

PATIENT

DRUGS (3)
  1. PROVIGIL [Suspect]
     Indication: NARCOLEPSY
     Dosage: 200 MG QD ORAL
     Route: 048
  2. LUNESTA [Suspect]
     Indication: SLEEP DISORDER
  3. NSAID [Concomitant]

REACTIONS (2)
  - ENCEPHALITIS [None]
  - MENINGITIS ASEPTIC [None]
